FAERS Safety Report 18847185 (Version 1)
Quarter: 2021Q1

REPORT INFORMATION
  Report Type: Spontaneous
  Country: AT (occurrence: AT)
  Receive Date: 20210203
  Receipt Date: 20210203
  Transmission Date: 20210419
  Serious: No
  Sender: FDA-Public Use
  Company Number: AT-EXELIXIS-CABO-20033593

PATIENT
  Sex: Male

DRUGS (2)
  1. OPDIVO [Concomitant]
     Active Substance: NIVOLUMAB
     Indication: METASTATIC RENAL CELL CARCINOMA
  2. CABOMETYX [Suspect]
     Active Substance: CABOZANTINIB S-MALATE
     Indication: METASTATIC RENAL CELL CARCINOMA
     Dosage: 60 MG
     Dates: start: 202008

REACTIONS (4)
  - Speech disorder [Unknown]
  - Oropharyngeal pain [Unknown]
  - Impaired quality of life [Unknown]
  - Dysphonia [Unknown]
